FAERS Safety Report 25931869 (Version 1)
Quarter: 2025Q4

REPORT INFORMATION
  Report Type: Spontaneous
  Country: US (occurrence: US)
  Receive Date: 20251016
  Receipt Date: 20251016
  Transmission Date: 20260117
  Serious: Yes (Other)
  Sender: SANOFI AVENTIS
  Company Number: US-SA-2025SA306115

PATIENT
  Sex: Female

DRUGS (17)
  1. DUPIXENT [Suspect]
     Active Substance: DUPILUMAB
     Indication: Asthma
     Dosage: 300 MG, QOW
     Route: 058
  2. BENZONATATE [Concomitant]
     Active Substance: BENZONATATE
     Dosage: 100 MG
  3. CYCLOBENZAPRINE [Concomitant]
     Active Substance: CYCLOBENZAPRINE
  4. FLUTICASONE [Concomitant]
     Active Substance: FLUTICASONE
  5. FUROSEMIDE [Concomitant]
     Active Substance: FUROSEMIDE
  6. IBUPROFEN [Concomitant]
     Active Substance: IBUPROFEN
  7. LEVOTHYROXINE\LIOTHYRONINE [Concomitant]
     Active Substance: LEVOTHYROXINE\LIOTHYRONINE
  8. METFORMIN [Concomitant]
     Active Substance: METFORMIN HYDROCHLORIDE
  9. MONTELUKAST [Concomitant]
     Active Substance: MONTELUKAST
  10. NIFEDIPINE [Concomitant]
     Active Substance: NIFEDIPINE
  11. OXYCODONE [Concomitant]
     Active Substance: OXYCODONE
  12. OXYCONTIN [Concomitant]
     Active Substance: OXYCODONE HYDROCHLORIDE
  13. PANTOPRAZOLE [Concomitant]
     Active Substance: PANTOPRAZOLE
  14. PREDNISONE [Concomitant]
     Active Substance: PREDNISONE
  15. SIMVASTATIN [Concomitant]
     Active Substance: SIMVASTATIN
  16. SYMBICORT [Concomitant]
     Active Substance: BUDESONIDE\FORMOTEROL FUMARATE DIHYDRATE
  17. TOBRAMYCIN [Concomitant]
     Active Substance: TOBRAMYCIN

REACTIONS (2)
  - Pneumonia [Unknown]
  - Fatigue [Unknown]
